FAERS Safety Report 20875385 (Version 1)
Quarter: 2022Q2

REPORT INFORMATION
  Report Type: Spontaneous
  Country: GB (occurrence: GB)
  Receive Date: 20220526
  Receipt Date: 20220526
  Transmission Date: 20220720
  Serious: Yes (Other)
  Sender: FDA-Public Use
  Company Number: None

PATIENT
  Age: 18 Year
  Sex: Female
  Weight: 65 kg

DRUGS (2)
  1. FLUOXETINE [Suspect]
     Active Substance: FLUOXETINE HYDROCHLORIDE
     Indication: Ill-defined disorder
     Route: 048
     Dates: start: 20200310, end: 20210501
  2. FLUOXETINE [Suspect]
     Active Substance: FLUOXETINE HYDROCHLORIDE
     Indication: Depression

REACTIONS (5)
  - Syncope [Recovered/Resolved]
  - Anorgasmia [Not Recovered/Not Resolved]
  - Decreased appetite [Recovered/Resolved]
  - Galactorrhoea [Recovered/Resolved]
  - Lactation disorder [Recovered/Resolved]

NARRATIVE: CASE EVENT DATE: 20200101
